FAERS Safety Report 21994878 (Version 1)
Quarter: 2023Q1

REPORT INFORMATION
  Report Type: Spontaneous
  Country: US (occurrence: US)
  Receive Date: 20230215
  Receipt Date: 20230215
  Transmission Date: 20230418
  Serious: No
  Sender: FDA-Public Use
  Company Number: US-PFIZER INC-PV202200121016

PATIENT
  Age: 52 Year
  Sex: Male
  Weight: 68.027 kg

DRUGS (3)
  1. NURTEC ODT [Suspect]
     Active Substance: RIMEGEPANT SULFATE
     Indication: Migraine
     Dosage: 75 MG, AS NEEDED
     Route: 048
     Dates: start: 2022
  2. AMITRIPTYLINE AKOS [Concomitant]
     Dosage: AT NIGHT BEFORE BED
  3. EXCEDRIN ASPIRIN FREE [Concomitant]
     Indication: Headache
     Dosage: UNK UNK, AS NEEDED

REACTIONS (1)
  - Therapeutic product effect incomplete [Unknown]

NARRATIVE: CASE EVENT DATE: 20221207
